FAERS Safety Report 5093535-2 (Version None)
Quarter: 2006Q3

REPORT INFORMATION
  Report Type: 
  Country: None (occurrence: None)
  Receive Date: 20060731
  Receipt Date: 20060414
  Transmission Date: 20061208
  Serious: No
  Sender: FDA-Public Use
  Company Number: 2006PV012064

PATIENT
  Age: 38 Year
  Sex: Female
  Weight: 126.1 kg

DRUGS (6)
  1. BYETTA [Suspect]
     Indication: DIABETES MELLITUS NON-INSULIN-DEPENDENT
     Dosage: 10 MCG, BID; SC, 5 MCG, BID SC
     Route: 058
     Dates: start: 20050704, end: 20050903
  2. BYETTA [Suspect]
     Indication: DIABETES MELLITUS NON-INSULIN-DEPENDENT
     Dosage: 10 MCG, BID; SC, 5 MCG, BID SC
     Route: 058
     Dates: start: 20050904
  3. GLUCOPHAGE [Concomitant]
  4. METFORMIN [Concomitant]
  5. SYNTHROID [Concomitant]
  6. VYTORIN [Concomitant]

REACTIONS (3)
  - DECREASED APPETITE [None]
  - NAUSEA [None]
  - WEIGHT DECREASED [None]
